FAERS Safety Report 15508486 (Version 2)
Quarter: 2018Q4

REPORT INFORMATION
  Report Type: Spontaneous
  Country: US (occurrence: US)
  Receive Date: 20181016
  Receipt Date: 20181022
  Transmission Date: 20190205
  Serious: Yes (Hospitalization, Other)
  Sender: FDA-Public Use
  Company Number: US-SUNOVION-2018SUN003969

PATIENT
  Age: 31 Year
  Sex: Female

DRUGS (2)
  1. LATUDA [Suspect]
     Active Substance: LURASIDONE HYDROCHLORIDE
     Dosage: 80 MG, UNK
     Route: 048
  2. LATUDA [Suspect]
     Active Substance: LURASIDONE HYDROCHLORIDE
     Indication: SCHIZOPHRENIA
     Dosage: 40 MG, UNK
     Route: 048

REACTIONS (5)
  - Aphasia [Recovered/Resolved]
  - Salivary hypersecretion [Recovered/Resolved]
  - Diplegia [Recovered/Resolved]
  - Movement disorder [Recovered/Resolved]
  - Dysphagia [Recovered/Resolved]
